FAERS Safety Report 16563967 (Version 1)
Quarter: 2019Q3

REPORT INFORMATION
  Report Type: Spontaneous
  Country: GB (occurrence: GB)
  Receive Date: 20190712
  Receipt Date: 20190712
  Transmission Date: 20191004
  Serious: Yes (Hospitalization)
  Sender: FDA-Public Use
  Company Number: GB-ACCORD-138044

PATIENT
  Age: 47 Year
  Sex: Female

DRUGS (20)
  1. DEXAMETHASONE. [Concomitant]
     Active Substance: DEXAMETHASONE
  2. CLOTRIMAZOLE. [Concomitant]
     Active Substance: CLOTRIMAZOLE
  3. AMOXICILLIN SODIUM/CLAVULANATE POTASSIUM [Concomitant]
  4. SENNA ALEXANDRINA [Concomitant]
     Active Substance: SENNA LEAF
  5. FLUCONAZOLE. [Concomitant]
     Active Substance: FLUCONAZOLE
  6. DOCUSATE/DOCUSATE CALCIUM/DOCUSATE POTASSIUM/DOCUSATE SODIUM [Concomitant]
  7. OMEPRAZOLE. [Concomitant]
     Active Substance: OMEPRAZOLE
  8. CYCLOPHOSPHAMIDE/CYCLOPHOSPHAMIDE MONOHYDRATE [Concomitant]
  9. EPIRUBICIN [Concomitant]
     Active Substance: EPIRUBICIN
  10. GRANULOCYTE COLONY STIMULATING [Concomitant]
     Active Substance: GRANULOCYTE COLONY-STIMULATING FACTOR NOS
  11. PARACETAMOL [Concomitant]
     Active Substance: ACETAMINOPHEN
  12. ONDANSETRON [Concomitant]
     Active Substance: ONDANSETRON
  13. METOCLOPRAMIDE. [Concomitant]
     Active Substance: METOCLOPRAMIDE
  14. SNO TEARS [Concomitant]
  15. HYDROCORTISONE. [Concomitant]
     Active Substance: HYDROCORTISONE
  16. ENOXAPARIN [Concomitant]
     Active Substance: ENOXAPARIN
  17. TAMOXIFEN [Concomitant]
     Active Substance: TAMOXIFEN
  18. DOCETAXEL. [Suspect]
     Active Substance: DOCETAXEL
     Indication: BREAST CANCER
     Dosage: OVER 1 HOUR
     Route: 042
     Dates: start: 20190314, end: 20190528
  19. DICLOFENAC [Concomitant]
     Active Substance: DICLOFENAC
  20. CETYL ALCOHOL/GLYCEROL/PARAFFIN [Concomitant]

REACTIONS (4)
  - Infusion site extravasation [Recovered/Resolved]
  - Peripheral swelling [Unknown]
  - Erythema [Unknown]
  - Blister [Unknown]

NARRATIVE: CASE EVENT DATE: 20190527
